FAERS Safety Report 22601025 (Version 1)
Quarter: 2023Q2

REPORT INFORMATION
  Report Type: Report from Study
  Country: US (occurrence: US)
  Receive Date: 20230614
  Receipt Date: 20230614
  Transmission Date: 20230721
  Serious: Yes (Other)
  Sender: FDA-Public Use
  Company Number: US-ABBVIE-5282246

PATIENT
  Age: 50 Year
  Sex: Female

DRUGS (3)
  1. HUMIRA [Suspect]
     Active Substance: ADALIMUMAB
     Indication: Psoriatic arthropathy
     Dosage: CITRATE FREE?FORM STRENGTH: 40MG
     Route: 058
     Dates: start: 20200224
  2. HUMIRA [Suspect]
     Active Substance: ADALIMUMAB
     Indication: Psoriasis
  3. HUMIRA [Suspect]
     Active Substance: ADALIMUMAB
     Indication: Rheumatoid arthritis

REACTIONS (8)
  - Skin laceration [Unknown]
  - Animal bite [Not Recovered/Not Resolved]
  - Incision site swelling [Not Recovered/Not Resolved]
  - Hand fracture [Unknown]
  - Incision site erythema [Unknown]
  - Joint range of motion decreased [Unknown]
  - Condition aggravated [Not Recovered/Not Resolved]
  - Incision site inflammation [Unknown]

NARRATIVE: CASE EVENT DATE: 20230301
